FAERS Safety Report 4799931-2 (Version None)
Quarter: 2005Q4

REPORT INFORMATION
  Report Type: 
  Country: None (occurrence: None)
  Receive Date: 20051017
  Receipt Date: 20051006
  Transmission Date: 20060501
  Serious: Yes (Hospitalization)
  Sender: FDA-Public Use
  Company Number: US-BOEHRINGER INGELHEIM PHARMACEUTICALS, INC.-2005-DE-04113GD

PATIENT

DRUGS (19)
  1. CLONIDINE [Suspect]
     Indication: DRUG DETOXIFICATION
     Route: 048
  2. CLONIDINE [Suspect]
     Dosage: UP TO 0.2 MG EVERY 4 H, MAXIMUM 1.2 MG/D
  3. MIDAZOLAM [Suspect]
     Indication: INDUCTION AND MAINTENANCE OF ANAESTHESIA
     Dosage: 1 - 3 MG INDUCTION, 1 - 2 MG AS NEEDED EVERY 1-2 H MAINTENANCE
     Route: 042
  4. LIDOCAINE [Suspect]
     Indication: INDUCTION OF ANAESTHESIA
     Dosage: 1 MG/KG
     Route: 042
  5. CLONAZEPAM [Suspect]
     Indication: DRUG WITHDRAWAL SYNDROME
     Dosage: UP TO 2 MG EVERY 8 H WITH ADDITIONAL DOSING FOR SEVERE PERSISTENT WITHDRAWAL
  6. SODIUM CITRATE [Suspect]
     Indication: ANAESTHETIC PREMEDICATION
     Route: 048
  7. RANITIDINE [Suspect]
     Indication: ANAESTHETIC PREMEDICATION
     Route: 048
  8. HEPARIN SODIUM [Suspect]
     Indication: ANAESTHETIC PREMEDICATION
     Route: 058
  9. OXYGEN [Suspect]
     Indication: INDUCTION OF ANAESTHESIA
     Route: 055
  10. PROPOFOL [Suspect]
     Indication: INDUCTION AND MAINTENANCE OF ANAESTHESIA
     Dosage: 2 -3 MG/KG
     Route: 042
  11. PROPOFOL [Suspect]
     Dosage: 25 - 150 MCG/KG/MIN
     Route: 042
  12. D-TUBOCURARINE [Suspect]
     Indication: INDUCTION OF ANAESTHESIA
     Route: 042
  13. SUCCINYLCHOLINE CHLORIDE [Suspect]
     Indication: INDUCTION OF ANAESTHESIA
     Dosage: 1.5 MG/KG
     Route: 042
  14. ISOFLURANE [Suspect]
     Indication: MAINTENANCE OF ANAESTHESIA
     Dosage: 0.5 - 1% IN 70% NITROUS OXIDE/30% OXYGEN
     Route: 055
  15. OCTREOTIDE ACETATE [Suspect]
     Indication: PREMEDICATION
     Dosage: 100 - 150 MCG
     Route: 042
  16. NALMEFENE HYDROCHLORIDE [Suspect]
     Indication: PREMEDICATION
     Route: 042
  17. NALTREXONE [Suspect]
     Indication: DRUG DETOXIFICATION
  18. KETOROLAC TROMETHAMINE [Suspect]
     Indication: ANAESTHESIA
     Route: 042
  19. ONDANSETRON HYDROCHLORIDE [Suspect]
     Indication: ANAESTHESIA
     Route: 042

REACTIONS (7)
  - BLOOD PRESSURE DECREASED [None]
  - BRONCHIAL OEDEMA [None]
  - DRUG ABUSER [None]
  - HEART RATE DECREASED [None]
  - PNEUMONIA ASPIRATION [None]
  - PULMONARY OEDEMA [None]
  - SLEEP APNOEA SYNDROME [None]
